FAERS Safety Report 14284309 (Version 1)
Quarter: 2017Q4

REPORT INFORMATION
  Report Type: Spontaneous
  Country: US (occurrence: US)
  Receive Date: 20171214
  Receipt Date: 20171214
  Transmission Date: 20180321
  Serious: No
  Sender: FDA-Public Use
  Company Number: US-BIOGEN-2017BI00494830

PATIENT

DRUGS (1)
  1. AVONEX [Suspect]
     Active Substance: INTERFERON BETA-1A
     Indication: MULTIPLE SCLEROSIS
     Route: 065

REACTIONS (7)
  - Drug intolerance [Unknown]
  - Dermatitis allergic [Unknown]
  - Depression [Unknown]
  - Fall [Recovered/Resolved]
  - Anxiety [Unknown]
  - Surgery [Recovered/Resolved]
  - Anger [Unknown]

NARRATIVE: CASE EVENT DATE: 2000
